FAERS Safety Report 7921141-8 (Version None)
Quarter: 2011Q4

REPORT INFORMATION
  Report Type: 
  Country: None (occurrence: None)
  Receive Date: 20111117
  Receipt Date: 20111110
  Transmission Date: 20120403
  Serious: Yes (Hospitalization)
  Sender: FDA-Public Use
  Company Number: PHHY2011GB099045

PATIENT
  Age: 71 Year
  Sex: Female

DRUGS (4)
  1. DICLOFENAC SODIUM [Suspect]
     Indication: PAIN
     Dosage: 50 MG, TID
     Route: 048
     Dates: start: 20111019, end: 20111022
  2. ACETAMINOPHEN [Concomitant]
  3. XARELTO [Suspect]
     Dosage: 10 MG, QD
     Route: 048
     Dates: start: 20111019, end: 20111020
  4. CODEINE PHOSPHATE [Concomitant]

REACTIONS (3)
  - HIATUS HERNIA [None]
  - REFLUX GASTRITIS [None]
  - GASTROINTESTINAL HAEMORRHAGE [None]
